FAERS Safety Report 5643653-2 (Version None)
Quarter: 2008Q1

REPORT INFORMATION
  Report Type: 
  Country: None (occurrence: None)
  Receive Date: 20080228
  Receipt Date: 20080220
  Transmission Date: 20080703
  Serious: Yes (Hospitalization, Other)
  Sender: FDA-Public Use
  Company Number: US-PFIZER INC-2008015617

PATIENT
  Sex: Female
  Weight: 69.9 kg

DRUGS (1)
  1. BEXTRA [Suspect]
     Indication: OSTEOPOROSIS
     Dates: start: 20010101, end: 20040901

REACTIONS (1)
  - CEREBROVASCULAR ACCIDENT [None]
